FAERS Safety Report 13063113 (Version 2)
Quarter: 2017Q1

REPORT INFORMATION
  Report Type: Spontaneous
  Country: US (occurrence: US)
  Receive Date: 20161227
  Receipt Date: 20170206
  Transmission Date: 20170428
  Serious: No
  Sender: FDA-Public Use
  Company Number: US-ASTRAZENECA-2016SF33279

PATIENT
  Age: 57 Year
  Sex: Male

DRUGS (4)
  1. DIGOXIN. [Concomitant]
     Active Substance: DIGOXIN
     Route: 048
  2. AMLOD/BENAZEPRIL [Concomitant]
     Indication: BLOOD PRESSURE MEASUREMENT
     Route: 048
  3. FUROSEMIDE. [Concomitant]
     Active Substance: FUROSEMIDE
     Indication: DIURETIC THERAPY
     Route: 048
  4. SYMBICORT [Suspect]
     Active Substance: BUDESONIDE\FORMOTEROL FUMARATE DIHYDRATE
     Indication: CHRONIC OBSTRUCTIVE PULMONARY DISEASE
     Dosage: 160MCG/4.5MCG, 2 DF TWO TIMES A DAY
     Route: 055
     Dates: start: 2010

REACTIONS (3)
  - Intentional product misuse [Unknown]
  - Device malfunction [Unknown]
  - Cardiac failure [Unknown]

NARRATIVE: CASE EVENT DATE: 2011
